FAERS Safety Report 8847676 (Version 4)
Quarter: 2013Q1

REPORT INFORMATION
  Report Type: Spontaneous
  Country: US (occurrence: US)
  Receive Date: 20121018
  Receipt Date: 20130204
  Transmission Date: 20140127
  Serious: No
  Sender: FDA-Public Use
  Company Number: US-ASTRAZENECA-2012SE78464

PATIENT
  Age: 84 Year
  Sex: Female
  Weight: 52.2 kg

DRUGS (8)
  1. SYMBICORT [Suspect]
     Indication: CHRONIC OBSTRUCTIVE PULMONARY DISEASE
     Dosage: 80/4.5 MCG , 2 PUFFS, TWO TIMES A DAY
     Route: 055
     Dates: start: 2012
  2. SYMBICORT [Suspect]
     Indication: MULTIPLE ALLERGIES
     Dosage: 80/4.5 MCG , 2 PUFFS, TWO TIMES A DAY
     Route: 055
     Dates: start: 2012
  3. NEXIUM [Suspect]
     Indication: GASTROOESOPHAGEAL REFLUX DISEASE
     Route: 048
     Dates: start: 2003
  4. CRESTOR [Suspect]
     Indication: BLOOD CHOLESTEROL INCREASED
     Route: 048
  5. CLONAZAPRAM [Concomitant]
     Indication: SLEEP DISORDER
     Route: 048
  6. LOSARTAN HCT [Concomitant]
     Dosage: 100-125 MG DAILY
     Route: 048
  7. CITALOPRAM [Concomitant]
     Indication: DEPRESSION
     Route: 048
  8. ZYRTEC [Concomitant]
     Indication: HYPERSENSITIVITY
     Dosage: DAILY
     Route: 048

REACTIONS (10)
  - Chronic obstructive pulmonary disease [Unknown]
  - Gait disturbance [Unknown]
  - Groin pain [Unknown]
  - Varicose vein [Unknown]
  - Impaired work ability [Unknown]
  - Limb discomfort [Unknown]
  - Rhinorrhoea [Unknown]
  - Pain in extremity [Unknown]
  - Muscle spasms [Unknown]
  - Rash generalised [Unknown]
